FAERS Safety Report 8519196-5 (Version None)
Quarter: 2012Q3

REPORT INFORMATION
  Report Type: 
  Country: None (occurrence: None)
  Receive Date: 20120718
  Receipt Date: 20120710
  Transmission Date: 20120928
  Serious: Yes (Other)
  Sender: FDA-Public Use
  Company Number: BR-ELI_LILLY_AND_COMPANY-BR201207003184

PATIENT
  Sex: Male

DRUGS (1)
  1. CIALIS [Suspect]
     Dosage: 20 MG, OTHER
     Route: 065

REACTIONS (13)
  - DYSPNOEA [None]
  - PENIS DISORDER [None]
  - SUICIDAL IDEATION [None]
  - CRYING [None]
  - ERECTION INCREASED [None]
  - DEPRESSIVE SYMPTOM [None]
  - STARING [None]
  - OVERDOSE [None]
  - RESPIRATORY RATE DECREASED [None]
  - HEAD DISCOMFORT [None]
  - ERECTILE DYSFUNCTION [None]
  - BRADYPHRENIA [None]
  - HYPOKINESIA [None]
